FAERS Safety Report 16632414 (Version 1)
Quarter: 2019Q3

REPORT INFORMATION
  Report Type: Spontaneous
  Country: US (occurrence: US)
  Receive Date: 20190725
  Receipt Date: 20190725
  Transmission Date: 20191004
  Serious: No
  Sender: FDA-Public Use
  Company Number: US-ABBVIE-19S-163-2690015-00

PATIENT
  Age: 88 Year
  Sex: Female
  Weight: 51.76 kg

DRUGS (7)
  1. VITAMIN B12 [Suspect]
     Active Substance: CYANOCOBALAMIN
     Indication: VITAMIN B12 DECREASED
     Route: 060
     Dates: start: 2018, end: 20190223
  2. BETIMOL [Concomitant]
     Active Substance: TIMOLOL
     Indication: GLAUCOMA
  3. SYNTHROID [Suspect]
     Active Substance: LEVOTHYROXINE SODIUM
     Route: 048
     Dates: start: 2009, end: 2015
  4. XALATAN [Concomitant]
     Active Substance: LATANOPROST
     Indication: GLAUCOMA
  5. SYNTHROID [Suspect]
     Active Substance: LEVOTHYROXINE SODIUM
     Indication: HYPOTHYROIDISM
     Route: 048
     Dates: start: 2009, end: 2009
  6. SYNTHROID [Suspect]
     Active Substance: LEVOTHYROXINE SODIUM
     Route: 048
     Dates: start: 2015
  7. ASPIRIN. [Concomitant]
     Active Substance: ASPIRIN
     Indication: PROPHYLAXIS

REACTIONS (4)
  - Blood thyroid stimulating hormone decreased [Recovered/Resolved]
  - Blood thyroid stimulating hormone increased [Not Recovered/Not Resolved]
  - Thinking abnormal [Recovered/Resolved]
  - Pruritus [Not Recovered/Not Resolved]

NARRATIVE: CASE EVENT DATE: 2009
